FAERS Safety Report 23371366 (Version 7)
Quarter: 2024Q1

REPORT INFORMATION
  Report Type: Spontaneous
  Country: US (occurrence: US)
  Receive Date: 20240105
  Receipt Date: 20240207
  Transmission Date: 20240409
  Serious: No
  Sender: FDA-Public Use
  Company Number: US-PFIZER INC-PV202300209077

PATIENT
  Age: 70 Year
  Sex: Female

DRUGS (2)
  1. IBRANCE [Suspect]
     Active Substance: PALBOCICLIB
     Indication: Breast cancer female
     Dosage: 100 MG
  2. CIMETIDINE [Concomitant]
     Active Substance: CIMETIDINE
     Dosage: AS NEEDED

REACTIONS (3)
  - Nausea [Not Recovered/Not Resolved]
  - Full blood count decreased [Unknown]
  - Pain [Unknown]
